FAERS Safety Report 8399155-6 (Version None)
Quarter: 2012Q2

REPORT INFORMATION
  Report Type: 
  Country: None (occurrence: None)
  Receive Date: 20120323
  Receipt Date: 20110808
  Transmission Date: 20120825
  Serious: Yes (Other)
  Sender: FDA-Public Use
  Company Number: 163-21880-11061679

PATIENT
  Age: 67 Year
  Sex: Male
  Weight: 127 kg

DRUGS (5)
  1. DEXAMETHASONE [Concomitant]
  2. WARFARIN SODIUM [Concomitant]
  3. REVLIMID [Suspect]
     Indication: LEUKAEMIA PLASMACYTIC
     Dosage: 15 MG, QD X 21 DAYS, EVERY 28 DAYS, PO
     Route: 048
     Dates: start: 20110517
  4. ALLOPURINOL [Concomitant]
  5. ACYCLOVIR [Concomitant]

REACTIONS (5)
  - BRONCHITIS [None]
  - FALL [None]
  - DYSPNOEA [None]
  - RIB FRACTURE [None]
  - PRURITUS [None]
